FAERS Safety Report 14890267 (Version 3)
Quarter: 2018Q3

REPORT INFORMATION
  Report Type: Spontaneous
  Country: US (occurrence: US)
  Receive Date: 20180514
  Receipt Date: 20180705
  Transmission Date: 20181010
  Serious: Yes (Death, Hospitalization)
  Sender: FDA-Public Use
  Company Number: US-PFIZER INC-2018194943

PATIENT
  Age: 78 Year
  Sex: Female

DRUGS (1)
  1. IBRANCE [Suspect]
     Active Substance: PALBOCICLIB
     Indication: BREAST CANCER FEMALE
     Dosage: 125 MG, CYCLIC (TAKE ONE CAPSULE BY MOUTH ONCE DAILY WITH FOOD FOR 21 DAYS, THEN 7 DAYS OFF)
     Route: 048
     Dates: start: 20180507, end: 20180511

REACTIONS (7)
  - Neoplasm progression [Fatal]
  - Respiratory distress [Unknown]
  - Fatigue [Not Recovered/Not Resolved]
  - Bronchial secretion retention [Unknown]
  - Depression [Not Recovered/Not Resolved]
  - Respiratory failure [Fatal]
  - Atelectasis [Unknown]
